FAERS Safety Report 19612260 (Version 1)
Quarter: 2021Q3

REPORT INFORMATION
  Report Type: Report from Study
  Country: DE (occurrence: DE)
  Receive Date: 20210726
  Receipt Date: 20210726
  Transmission Date: 20211014
  Serious: Yes (Death, Other)
  Sender: FDA-Public Use
  Company Number: DE-CELLTRION INC.-2021DE009964

PATIENT

DRUGS (2)
  1. ERIBULIN [Suspect]
     Active Substance: ERIBULIN
     Indication: BREAST CANCER
     Dosage: DOSE UNKNOWN, CYCLIC
     Route: 042
     Dates: start: 201910, end: 202011
  2. TRASTUZUMAB (UNKNOWN) [Suspect]
     Active Substance: TRASTUZUMAB
     Indication: BREAST CANCER
     Dosage: DOSE AND FREQUENCY UNKNOWN
     Route: 065
     Dates: start: 201910

REACTIONS (4)
  - Respiratory failure [Fatal]
  - Polyneuropathy [Unknown]
  - Renal failure [Fatal]
  - Disease progression [Unknown]

NARRATIVE: CASE EVENT DATE: 201910
